FAERS Safety Report 8448390-7 (Version None)
Quarter: 2012Q2

REPORT INFORMATION
  Report Type: 
  Country: None (occurrence: None)
  Receive Date: 20120619
  Receipt Date: 20120605
  Transmission Date: 20120825
  Serious: Yes (Hospitalization)
  Sender: FDA-Public Use
  Company Number: RU-ROCHE-1020970

PATIENT
  Sex: Female
  Weight: 50 kg

DRUGS (3)
  1. PEGASYS [Suspect]
     Indication: HEPATITIS C
     Dosage: FORM:SPI
     Route: 058
     Dates: start: 20111026
  2. COPEGUS [Suspect]
     Indication: HEPATITIS C
     Route: 048
     Dates: start: 20111026
  3. BI 201335 (HCV PROTEASE INHIBITOR) [Suspect]
     Indication: HEPATITIS C

REACTIONS (1)
  - RASH [None]
